FAERS Safety Report 6093101-6 (Version None)
Quarter: 2009Q1

REPORT INFORMATION
  Report Type: 
  Country: None (occurrence: None)
  Receive Date: 20090226
  Receipt Date: 20090220
  Transmission Date: 20090719
  Serious: No
  Sender: FDA-Public Use
  Company Number: US-JNJFOC-20090205650

PATIENT
  Sex: Female
  Weight: 63.5 kg

DRUGS (5)
  1. DURAGESIC-100 [Suspect]
     Indication: BACK PAIN
     Route: 062
  2. OMERPRAZOLE [Concomitant]
     Indication: GASTROOESOPHAGEAL REFLUX DISEASE
     Route: 048
  3. ARICEPT [Concomitant]
     Indication: DEMENTIA
     Route: 048
  4. NAMENDA [Concomitant]
     Indication: DEMENTIA
     Route: 048
  5. LACTULOSE [Concomitant]
     Indication: CONSTIPATION
     Dosage: 4 TABLESPOONS
     Route: 048

REACTIONS (4)
  - AKATHISIA [None]
  - APPLICATION SITE PAIN [None]
  - APPLICATION SITE URTICARIA [None]
  - INAPPROPRIATE SCHEDULE OF DRUG ADMINISTRATION [None]
